FAERS Safety Report 9792246 (Version 1)
Quarter: 2014Q1

REPORT INFORMATION
  Report Type: Spontaneous
  Country: SI (occurrence: SI)
  Receive Date: 20140102
  Receipt Date: 20140102
  Transmission Date: 20141002
  Serious: Yes (Hospitalization)
  Sender: FDA-Public Use
  Company Number: SI-SA-2013SA133950

PATIENT
  Age: 39 Year
  Sex: Female

DRUGS (7)
  1. TAXOTERE [Suspect]
     Indication: BREAST CANCER
     Route: 042
     Dates: start: 20131206, end: 20131208
  2. LYRICA [Concomitant]
  3. TOPAMAX [Concomitant]
  4. CYMBALTA [Concomitant]
  5. ZOMIG [Concomitant]
  6. DICLOFENAC [Concomitant]
  7. ZALDIAR [Concomitant]

REACTIONS (1)
  - Encephalopathy [Recovered/Resolved]
